FAERS Safety Report 22175668 (Version 2)
Quarter: 2023Q2

REPORT INFORMATION
  Report Type: Spontaneous
  Country: DE (occurrence: DE)
  Receive Date: 20230405
  Receipt Date: 20230424
  Transmission Date: 20230721
  Serious: Yes (Other)
  Sender: FDA-Public Use
  Company Number: DE-GSKCCFEMEA-Case-01701055_AE-69163

PATIENT

DRUGS (2)
  1. TRELEGY ELLIPTA [Suspect]
     Active Substance: FLUTICASONE FUROATE\UMECLIDINIUM BROMIDE\VILANTEROL TRIFENATATE
     Indication: Product used for unknown indication
     Dosage: 2 PUFF(S), QD,2 X 1 INHALATION
     Route: 055
     Dates: start: 2021, end: 202303
  2. AMLODIPINE [Concomitant]
     Active Substance: AMLODIPINE BESYLATE
     Indication: Hypertension
     Dosage: UNK,2 X 5MG

REACTIONS (5)
  - Bronchial oedema [Unknown]
  - Bronchoalveolar lavage [Unknown]
  - Incorrect dose administered [Unknown]
  - Product use issue [Unknown]
  - Product prescribing issue [Unknown]
